FAERS Safety Report 19716143 (Version 1)
Quarter: 2021Q3

REPORT INFORMATION
  Report Type: Spontaneous
  Country: DE (occurrence: DE)
  Receive Date: 20210818
  Receipt Date: 20210818
  Transmission Date: 20211014
  Serious: Yes (Other)
  Sender: FDA-Public Use
  Company Number: DE-MYLANLABS-2021M1051663

PATIENT
  Age: 47 Year
  Sex: Female

DRUGS (7)
  1. OLAPARIB. [Suspect]
     Active Substance: OLAPARIB
     Indication: BREAST CANCER FEMALE
     Dosage: 300 MILLIGRAM, BID
     Route: 048
     Dates: start: 202009, end: 20201109
  2. TAMOXIFEN [Suspect]
     Active Substance: TAMOXIFEN
     Indication: BREAST CANCER FEMALE
     Dosage: 20 MILLIGRAM
     Route: 048
     Dates: start: 201202, end: 201205
  3. PALBOCICLIB [Concomitant]
     Active Substance: PALBOCICLIB
     Indication: PRODUCT USED FOR UNKNOWN INDICATION
     Dosage: 125 MG DAILY 21 DAYS ON 7 DAYS OFF
  4. LETROZOLE. [Concomitant]
     Active Substance: LETROZOLE
     Indication: PRODUCT USED FOR UNKNOWN INDICATION
     Dosage: 3 MILLIGRAM
     Dates: start: 201205, end: 201703
  5. OLAPARIB. [Suspect]
     Active Substance: OLAPARIB
     Dosage: 150 MILLIGRAM, BID
     Route: 048
     Dates: start: 20201120
  6. OLAPARIB. [Suspect]
     Active Substance: OLAPARIB
     Dosage: ATTEMPTED TO INCREASE DOSE BUT IT WAS NOT TOLERATED
     Route: 048
  7. ANASTROZOLE. [Suspect]
     Active Substance: ANASTROZOLE
     Indication: BREAST CANCER FEMALE
     Dosage: 1 MILLIGRAM, QD
     Route: 048

REACTIONS (9)
  - Metastases to bone [Unknown]
  - Metastases to spine [Unknown]
  - Haemoglobin decreased [Recovering/Resolving]
  - Off label use [Unknown]
  - Fatigue [Unknown]
  - Breast cancer metastatic [Unknown]
  - Metastases to pelvis [Unknown]
  - Metastases to liver [Unknown]
  - Drug intolerance [Unknown]

NARRATIVE: CASE EVENT DATE: 2019
